FAERS Safety Report 5358669-3 (Version None)
Quarter: 2007Q2

REPORT INFORMATION
  Report Type: 
  Country: None (occurrence: None)
  Receive Date: 20070614
  Receipt Date: 20070614
  Transmission Date: 20071010
  Serious: Yes (Hospitalization)
  Sender: FDA-Public Use
  Company Number: None

PATIENT
  Age: 79 Year
  Sex: Female

DRUGS (1)
  1. ZOSYN [Suspect]
     Indication: INFECTION
     Dosage: 3.375 Q6H IV BOLUS
     Route: 040

REACTIONS (2)
  - RASH [None]
  - URTICARIA [None]
